FAERS Safety Report 16960789 (Version 1)
Quarter: 2019Q4

REPORT INFORMATION
  Report Type: Spontaneous
  Country: ES (occurrence: ES)
  Receive Date: 20191025
  Receipt Date: 20191025
  Transmission Date: 20200122
  Serious: Yes (Hospitalization, Other)
  Sender: FDA-Public Use
  Company Number: ES-ACCORD-158906

PATIENT
  Age: 36 Year
  Sex: Female

DRUGS (2)
  1. TOPIRAMATE. [Suspect]
     Active Substance: TOPIRAMATE
     Indication: IDIOPATHIC INTRACRANIAL HYPERTENSION
     Dosage: (INITIAL DOSE OF 12.5 MG DAILY WITH PROGRESSIVE INCREASE UPTO 50 MG EVERY 12 HOURS
  2. ACETAZOLAMIDE. [Concomitant]
     Active Substance: ACETAZOLAMIDE
     Indication: IDIOPATHIC INTRACRANIAL HYPERTENSION
     Dosage: 3 TIMES A DAY

REACTIONS (3)
  - Off label use [Unknown]
  - Macular detachment [Recovered/Resolved]
  - Retinal detachment [Recovered/Resolved]
